FAERS Safety Report 22008284 (Version 2)
Quarter: 2023Q1

REPORT INFORMATION
  Report Type: Spontaneous
  Country: US (occurrence: US)
  Receive Date: 20230219
  Receipt Date: 20230228
  Transmission Date: 20230417
  Serious: No
  Sender: FDA-Public Use
  Company Number: US-SA-SAC20230217000144

PATIENT
  Age: 31 Year
  Sex: Female

DRUGS (1)
  1. CABLIVI [Suspect]
     Active Substance: CAPLACIZUMAB-YHDP
     Indication: Thrombocytopenia
     Dosage: 11 MG, QD
     Route: 058
     Dates: start: 20230131

REACTIONS (1)
  - ADAMTS13 activity abnormal [Unknown]

NARRATIVE: CASE EVENT DATE: 20230207
